FAERS Safety Report 17132472 (Version 1)
Quarter: 2019Q4

REPORT INFORMATION
  Report Type: Spontaneous
  Country: JP (occurrence: JP)
  Receive Date: 20191210
  Receipt Date: 20191210
  Transmission Date: 20200122
  Serious: Yes (Hospitalization)
  Sender: FDA-Public Use
  Company Number: JP-ROCHE-2489696

PATIENT
  Age: 71 Year
  Sex: Male

DRUGS (10)
  1. TECENTRIQ [Suspect]
     Active Substance: ATEZOLIZUMAB
     Indication: LUNG ADENOCARCINOMA
     Dosage: DOSE INTERVAL UNCERTAINTY
     Route: 041
     Dates: start: 20190906, end: 20190925
  2. AVASTIN [Suspect]
     Active Substance: BEVACIZUMAB
     Indication: LUNG ADENOCARCINOMA
     Dosage: DOSAGE IS UNCERTAIN.
     Route: 041
     Dates: start: 20190906, end: 20190925
  3. GRANISETRON [Concomitant]
     Active Substance: GRANISETRON
  4. RANITIDINE. [Concomitant]
     Active Substance: RANITIDINE
  5. CARBOPLATIN. [Concomitant]
     Active Substance: CARBOPLATIN
  6. PACLITAXEL. [Concomitant]
     Active Substance: PACLITAXEL
  7. LANSOPRAZOLE. [Concomitant]
     Active Substance: LANSOPRAZOLE
  8. DEXART [Concomitant]
     Active Substance: DEXAMETHASONE SODIUM PHOSPHATE
  9. RESTAMIN [DIPHENHYDRAMINE] [Concomitant]
  10. EMEND [Concomitant]
     Active Substance: APREPITANT

REACTIONS (1)
  - Autoimmune myositis [Unknown]

NARRATIVE: CASE EVENT DATE: 20190924
